FAERS Safety Report 14020556 (Version 1)
Quarter: 2017Q3

REPORT INFORMATION
  Report Type: Spontaneous
  Country: CN (occurrence: CN)
  Receive Date: 20170928
  Receipt Date: 20170928
  Transmission Date: 20171128
  Serious: Yes (Hospitalization)
  Sender: FDA-Public Use
  Company Number: CN-OTSUKA-2017_020752

PATIENT
  Age: 59 Year
  Sex: Male
  Weight: 80 kg

DRUGS (4)
  1. VORICONAZOLE. [Suspect]
     Active Substance: VORICONAZOLE
     Indication: PRODUCT USED FOR UNKNOWN INDICATION
     Dosage: UNK
     Route: 065
  2. GRANULOCYTE COLONY STIMULATING FACTOR [Suspect]
     Active Substance: GRANULOCYTE COLONY-STIMULATING FACTOR NOS
     Indication: PRODUCT USED FOR UNKNOWN INDICATION
     Dosage: UNK
     Route: 065
  3. DECITABINE. [Suspect]
     Active Substance: DECITABINE
     Indication: CHEMOTHERAPY
     Dosage: 39 MG, 1 IN 1 DAY
     Route: 042
     Dates: start: 20170116, end: 20170120
  4. THALIDOMIDE [Suspect]
     Active Substance: THALIDOMIDE
     Indication: PRODUCT USED FOR UNKNOWN INDICATION
     Dosage: UNK
     Route: 065

REACTIONS (2)
  - Polyneuropathy [Not Recovered/Not Resolved]
  - Oedema peripheral [Unknown]

NARRATIVE: CASE EVENT DATE: 20170127
